FAERS Safety Report 15479994 (Version 1)
Quarter: 2018Q4

REPORT INFORMATION
  Report Type: Report from Study
  Country: US (occurrence: US)
  Receive Date: 20181009
  Receipt Date: 20181009
  Transmission Date: 20190205
  Serious: Yes (Death, Life-Threatening, Other)
  Sender: FDA-Public Use
  Company Number: US-CELGENEUS-USA-20180700952

PATIENT
  Age: 65 Year
  Sex: Male
  Weight: 89.5 kg

DRUGS (4)
  1. CYTARABINE. [Suspect]
     Active Substance: CYTARABINE
     Indication: ACUTE MYELOID LEUKAEMIA
     Route: 065
     Dates: start: 20180611, end: 20180615
  2. MITOXANTRONE [Suspect]
     Active Substance: MITOXANTRONE HYDROCHLORIDE
     Indication: ACUTE MYELOID LEUKAEMIA
     Route: 065
     Dates: start: 20180611, end: 20180615
  3. ETOPOSIDE. [Suspect]
     Active Substance: ETOPOSIDE
     Indication: ACUTE MYELOID LEUKAEMIA
     Route: 065
     Dates: start: 20180611, end: 20180615
  4. REVLIMID [Suspect]
     Active Substance: LENALIDOMIDE
     Indication: ACUTE MYELOID LEUKAEMIA RECURRENT
     Dosage: 50 MILLIGRAM
     Route: 048
     Dates: start: 20180608, end: 20180617

REACTIONS (4)
  - Small intestinal obstruction [Unknown]
  - Peritonitis [Recovered/Resolved]
  - Hernia [Recovered/Resolved]
  - Multiple organ dysfunction syndrome [Fatal]

NARRATIVE: CASE EVENT DATE: 20180628
